FAERS Safety Report 5056881-4 (Version None)
Quarter: 2006Q2

REPORT INFORMATION
  Report Type: 
  Country: None (occurrence: None)
  Receive Date: 20060620
  Receipt Date: 20050628
  Transmission Date: 20061013
  Serious: Yes (Hospitalization)
  Sender: FDA-Public Use
  Company Number: M-05-222

PATIENT
  Age: 72 Year
  Sex: Male

DRUGS (1)
  1. PACERONE [Suspect]
     Dosage: 200 MG, QD, PO
     Route: 048
     Dates: start: 20050301

REACTIONS (2)
  - BLOOD PRESSURE DECREASED [None]
  - HEART RATE DECREASED [None]
